FAERS Safety Report 6535819-4 (Version None)
Quarter: 2010Q1

REPORT INFORMATION
  Report Type: 
  Country: None (occurrence: None)
  Receive Date: 20100106
  Receipt Date: 20091221
  Transmission Date: 20100710
  Serious: Yes (Other)
  Sender: FDA-Public Use
  Company Number: TCI2009A05234

PATIENT
  Age: 55 Year
  Sex: Male

DRUGS (1)
  1. ACTOS [Suspect]
     Dosage: PER ORAL
     Route: 048
     Dates: start: 20071001, end: 20071101

REACTIONS (2)
  - DIZZINESS [None]
  - HYPOAESTHESIA [None]
